FAERS Safety Report 24733510 (Version 2)
Quarter: 2025Q1

REPORT INFORMATION
  Report Type: Spontaneous
  Country: US (occurrence: US)
  Receive Date: 20241213
  Receipt Date: 20250219
  Transmission Date: 20250409
  Serious: Yes (Other)
  Sender: NOVARTIS
  Company Number: US-002147023-NVSC2024US236501

PATIENT
  Weight: 79.38 kg

DRUGS (1)
  1. COSENTYX [Suspect]
     Active Substance: SECUKINUMAB
     Indication: Product used for unknown indication
     Dosage: UNK, QW
     Route: 058
     Dates: start: 20190701, end: 20191001

REACTIONS (3)
  - Cerebrovascular accident [Unknown]
  - Product dose omission issue [Unknown]
  - Condition aggravated [Unknown]
